FAERS Safety Report 21117402 (Version 5)
Quarter: 2024Q1

REPORT INFORMATION
  Report Type: Report from Study
  Country: US (occurrence: US)
  Receive Date: 20220722
  Receipt Date: 20240305
  Transmission Date: 20240409
  Serious: No
  Sender: FDA-Public Use
  Company Number: US-BRISTOL-MYERS SQUIBB COMPANY-2022-078240

PATIENT
  Age: 46 Year
  Sex: Female
  Weight: 85.82 kg

DRUGS (6)
  1. REVLIMID [Suspect]
     Active Substance: LENALIDOMIDE
     Indication: Plasma cell myeloma
     Dosage: FREQUENCY: FOR 21 DAYS ANDTHEN HOLD FOR 7 DAYS
     Route: 048
     Dates: start: 20210111
  2. REVLIMID [Suspect]
     Active Substance: LENALIDOMIDE
     Dosage: FREQUENCY: FOR 21 DAYS ANDTHEN HOLD FOR 7 DAYS
     Route: 048
     Dates: start: 20210112
  3. REVLIMID [Suspect]
     Active Substance: LENALIDOMIDE
     Dosage: FREQUENCY: FOR 21 DAYS ANDTHEN HOLD FOR 7 DAYS
     Route: 048
     Dates: start: 20210112
  4. REVLIMID [Suspect]
     Active Substance: LENALIDOMIDE
     Dosage: FREQUENCY: TAKE 1 CAPSULE OF 5 MG WITH 1 CAPSULE OF 2.5 MG (7.5 MG TOTAL) DAILY FOR 21 DAYS OF A 28
     Route: 048
     Dates: start: 2017
  5. LINZESS [Concomitant]
     Active Substance: LINACLOTIDE
     Indication: Product used for unknown indication
  6. CHOLESTYRAMINE [Concomitant]
     Active Substance: CHOLESTYRAMINE
     Indication: Product used for unknown indication

REACTIONS (5)
  - Gastrointestinal disorder [Not Recovered/Not Resolved]
  - Brain fog [Not Recovered/Not Resolved]
  - Nausea [Unknown]
  - Muscle spasms [Recovered/Resolved]
  - Diarrhoea [Recovering/Resolving]
